FAERS Safety Report 6195809-0 (Version None)
Quarter: 2009Q2

REPORT INFORMATION
  Report Type: 
  Country: None (occurrence: None)
  Receive Date: 20090520
  Receipt Date: 20090514
  Transmission Date: 20091009
  Serious: Yes (Life-Threatening, Hospitalization)
  Sender: FDA-Public Use
  Company Number: CA-BAYER-200917948NA

PATIENT
  Age: 68 Year
  Sex: Female
  Weight: 79 kg

DRUGS (12)
  1. AVELOX [Suspect]
     Indication: PNEUMONIA
     Dosage: TOTAL DAILY DOSE: 400 MG  UNIT DOSE: 400 MG
     Route: 048
     Dates: start: 20080901
  2. AVELOX [Suspect]
     Dosage: TOTAL DAILY DOSE: 400 MG  UNIT DOSE: 400 MG
     Route: 048
     Dates: start: 20081215, end: 20081215
  3. AVELOX [Suspect]
     Indication: DRUG USE FOR UNKNOWN INDICATION
     Route: 042
     Dates: start: 20081101
  4. ADVAIR HFA [Concomitant]
     Dosage: TOTAL DAILY DOSE: 500 ?G
     Route: 055
  5. ATENOLOL [Concomitant]
  6. FUROSEMIDE [Concomitant]
  7. HYDROCHLOROTHIAZIDE [Concomitant]
  8. PRAVASTATIN SODIUM [Concomitant]
  9. SERTRALINE HCL [Concomitant]
  10. SLOW-K [Concomitant]
  11. SPIRIVA [Concomitant]
     Route: 055
  12. TYLENOL [Concomitant]

REACTIONS (6)
  - BLOOD POTASSIUM DECREASED [None]
  - DYSPNOEA [None]
  - ERYTHEMA [None]
  - NAUSEA [None]
  - PO2 DECREASED [None]
  - PRURITUS [None]
